FAERS Safety Report 8854290 (Version 1)
Quarter: 2012Q4

REPORT INFORMATION
  Report Type: 
  Country: CO (occurrence: CO)
  Receive Date: 20121023
  Receipt Date: 20121023
  Transmission Date: 20130627
  Serious: Yes (Hospitalization, Other)
  Sender: FDA-Public Use
  Company Number: CO-PFIZER INC-2012262014

PATIENT
  Age: 74 Year
  Sex: Female

DRUGS (6)
  1. LYRICA [Suspect]
     Indication: TENDONITIS
     Dosage: 150 mg, 1x/day
     Route: 048
     Dates: start: 2008, end: 2012
  2. LYRICA [Suspect]
     Dosage: 300 mg, 1x/day
     Route: 048
     Dates: start: 2012, end: 2012
  3. LYRICA [Suspect]
     Dosage: 150 mg, 1x/day
     Route: 048
     Dates: start: 2012
  4. MONTELUKAST [Concomitant]
     Indication: ASTHMA
     Dosage: UNK
     Dates: start: 2009
  5. SPIRIVA [Concomitant]
     Dosage: 500 mcg, UNK
  6. LOSARTAN [Concomitant]
     Dosage: 50 mg, 2x/day

REACTIONS (6)
  - Pneumonia [Unknown]
  - Rib fracture [Recovered/Resolved]
  - Amnesia [Recovering/Resolving]
  - Incorrect dose administered [Recovered/Resolved]
  - Somnolence [Recovering/Resolving]
  - Off label use [Unknown]
